FAERS Safety Report 5265978-5 (Version None)
Quarter: 2007Q1

REPORT INFORMATION
  Report Type: 
  Country: None (occurrence: None)
  Receive Date: 20070315
  Receipt Date: 20070305
  Transmission Date: 20070707
  Serious: Yes (Hospitalization, Other)
  Sender: FDA-Public Use
  Company Number: PHBS2007FI01544

PATIENT
  Sex: Female

DRUGS (5)
  1. LESCOL [Suspect]
     Dosage: 80 MG, UNK
     Route: 048
  2. SERETIDE DISKUS [Concomitant]
     Indication: ASTHMA
  3. COZAAR [Concomitant]
     Indication: HYPERTENSION
     Dosage: 100 MG, UNK
  4. VAGIFEM [Concomitant]
  5. KESTINE [Concomitant]

REACTIONS (8)
  - ALANINE AMINOTRANSFERASE INCREASED [None]
  - ARRHYTHMIA [None]
  - BLOOD ALKALINE PHOSPHATASE INCREASED [None]
  - BLOOD BILIRUBIN INCREASED [None]
  - GAMMA-GLUTAMYLTRANSFERASE INCREASED [None]
  - HEPATITIS [None]
  - PYREXIA [None]
  - RED BLOOD CELL SEDIMENTATION RATE INCREASED [None]
